FAERS Safety Report 25734414 (Version 1)
Quarter: 2025Q3

REPORT INFORMATION
  Report Type: Spontaneous
  Country: US (occurrence: US)
  Receive Date: 20250828
  Receipt Date: 20250828
  Transmission Date: 20251020
  Serious: Yes (Other)
  Sender: ZYDUS PHARM
  Company Number: US-CADILA HEALTHCARE LIMITED-US-ZYDUS-127750

PATIENT

DRUGS (3)
  1. BUPROPION [Interacting]
     Active Substance: BUPROPION
     Indication: Anxiety
     Route: 065
  2. BUPROPION [Interacting]
     Active Substance: BUPROPION
     Indication: Depression
  3. TAMOXIFEN [Interacting]
     Active Substance: TAMOXIFEN
     Indication: Intraductal proliferative breast lesion
     Route: 065

REACTIONS (5)
  - Depressive symptom [Unknown]
  - Condition aggravated [Unknown]
  - Drug interaction [Unknown]
  - Anxiety [Unknown]
  - Fatigue [Unknown]
